FAERS Safety Report 13199683 (Version 1)
Quarter: 2017Q1

REPORT INFORMATION
  Report Type: Report from Study
  Country: None (occurrence: BR)
  Receive Date: 20170208
  Receipt Date: 20170208
  Transmission Date: 20170428
  Serious: Yes (Hospitalization, Disabling)
  Sender: FDA-Public Use
  Company Number: BR-ABBVIE-17K-020-1862365-00

PATIENT
  Sex: Female
  Weight: 78 kg

DRUGS (2)
  1. LOSARTAN. [Concomitant]
     Active Substance: LOSARTAN
     Indication: HYPERTENSION
     Dates: start: 2013
  2. HUMIRA [Suspect]
     Active Substance: ADALIMUMAB
     Indication: RHEUMATOID ARTHRITIS
     Route: 058

REACTIONS (19)
  - Rheumatoid arthritis [Unknown]
  - Osteoarthritis [Recovered/Resolved]
  - Drug ineffective [Not Recovered/Not Resolved]
  - Arthropathy [Unknown]
  - Arthralgia [Unknown]
  - Gait disturbance [Recovered/Resolved]
  - Hepatic steatosis [Unknown]
  - Peripheral swelling [Recovered/Resolved]
  - Joint effusion [Recovered/Resolved]
  - Hypertension [Unknown]
  - Emotional disorder [Unknown]
  - Joint swelling [Unknown]
  - Joint swelling [Recovered/Resolved]
  - Peripheral swelling [Unknown]
  - Peripheral swelling [Recovered/Resolved]
  - Fluid retention [Unknown]
  - Malaise [Recovered/Resolved]
  - Pyrexia [Recovered/Resolved]
  - Blood cholesterol increased [Unknown]

NARRATIVE: CASE EVENT DATE: 2013
